FAERS Safety Report 4552560-8 (Version None)
Quarter: 2005Q1

REPORT INFORMATION
  Report Type: 
  Country: None (occurrence: None)
  Receive Date: 20050114
  Receipt Date: 20040901
  Transmission Date: 20050727
  Serious: No
  Sender: FDA-Public Use
  Company Number: US-GLAXOSMITHKLINE-A0524231A

PATIENT
  Age: 78 Year
  Sex: Female

DRUGS (9)
  1. IMITREX [Suspect]
     Indication: MIGRAINE
     Dosage: 6MG AS REQUIRED
     Route: 058
  2. NABUMETONE [Concomitant]
  3. NEURONTIN [Concomitant]
  4. VERAPAMIL [Concomitant]
  5. OXYBUTYNIN [Concomitant]
  6. PRIMIDONE [Concomitant]
  7. LOTENSIN HCT [Concomitant]
  8. CALCIUM GLUCONATE [Concomitant]
  9. UNKNOWN MEDICATION [Concomitant]

REACTIONS (1)
  - DRUG INEFFECTIVE [None]
